FAERS Safety Report 6855862-5 (Version None)
Quarter: 2010Q3

REPORT INFORMATION
  Report Type: 
  Country: None (occurrence: None)
  Receive Date: 20100719
  Receipt Date: 20100709
  Transmission Date: 20110219
  Serious: Yes (Hospitalization)
  Sender: FDA-Public Use
  Company Number: JP-ASTRAZENECA-2010SE33047

PATIENT
  Age: 70 Year
  Sex: Male

DRUGS (7)
  1. SEROQUEL [Suspect]
     Indication: HALLUCINATION, VISUAL
     Route: 048
  2. SEROQUEL [Suspect]
     Dosage: DOSE INCREASED
     Route: 048
  3. SEROQUEL [Suspect]
     Route: 048
  4. SEROQUEL [Suspect]
     Route: 048
  5. DONEPEZIL HCL [Concomitant]
     Indication: COGNITIVE DISORDER
  6. DONEPEZIL HCL [Concomitant]
     Indication: HALLUCINATION, VISUAL
  7. L-DOPA [Concomitant]

REACTIONS (2)
  - BRADYCARDIA [None]
  - PARKINSON'S DISEASE [None]
